FAERS Safety Report 12876505 (Version 1)
Quarter: 2016Q4

REPORT INFORMATION
  Report Type: Spontaneous
  Country: US (occurrence: US)
  Receive Date: 20161021
  Receipt Date: 20161021
  Transmission Date: 20170207
  Serious: No
  Sender: FDA-Public Use
  Company Number: None

PATIENT
  Age: 69 Year
  Sex: Male
  Weight: 65 kg

DRUGS (1)
  1. LEUPROLIDE ACETATE. [Suspect]
     Active Substance: LEUPROLIDE ACETATE
     Dates: end: 20160627

REACTIONS (7)
  - Fall [None]
  - Dizziness [None]
  - Hyperhidrosis [None]
  - Loss of consciousness [None]
  - Head injury [None]
  - Atrial fibrillation [None]
  - Syncope [None]

NARRATIVE: CASE EVENT DATE: 20160722
